FAERS Safety Report 9311644 (Version 3)
Quarter: 2013Q2

REPORT INFORMATION
  Report Type: Spontaneous
  Country: US (occurrence: US)
  Receive Date: 20130528
  Receipt Date: 20130626
  Transmission Date: 20140414
  Serious: Yes (Disabling, Other)
  Sender: FDA-Public Use
  Company Number: US-PFIZER INC-2013161057

PATIENT
  Age: 54 Year
  Sex: Female
  Weight: 76.19 kg

DRUGS (5)
  1. LYRICA [Suspect]
     Indication: FIBROMYALGIA
     Dosage: 150 MG, 2X/DAY
     Route: 048
     Dates: start: 2009
  2. LISINOPRIL W/HYDROCHLOROTHIAZIDE [Concomitant]
     Dosage: 20/25 MG, UNK
  3. CELEXA [Concomitant]
     Indication: AFFECTIVE DISORDER
     Dosage: UNK
  4. SEROQUEL [Concomitant]
     Dosage: UNK
  5. AMBIEN [Concomitant]
     Indication: SLEEP DISORDER
     Dosage: UNK

REACTIONS (10)
  - Convulsion [Unknown]
  - Drug ineffective [Unknown]
  - Anxiety [Unknown]
  - Stress [Unknown]
  - Low density lipoprotein increased [Unknown]
  - Hypertension [Unknown]
  - Abdominal pain upper [Unknown]
  - Impaired driving ability [Unknown]
  - Weight increased [Unknown]
  - Weight decreased [Unknown]
